FAERS Safety Report 21595309 (Version 1)
Quarter: 2022Q4

REPORT INFORMATION
  Report Type: Report from Study
  Country: US (occurrence: US)
  Receive Date: 20221115
  Receipt Date: 20221115
  Transmission Date: 20230112
  Serious: No
  Sender: FDA-Public Use
  Company Number: US-ABBVIE-22K-163-4522149-00

PATIENT
  Sex: Female

DRUGS (2)
  1. IMBRUVICA [Suspect]
     Active Substance: IBRUTINIB
     Indication: Chronic lymphocytic leukaemia
     Route: 048
  2. IMBRUVICA [Suspect]
     Active Substance: IBRUTINIB
     Indication: Chronic lymphocytic leukaemia
     Route: 048
     Dates: start: 202210

REACTIONS (17)
  - Hypotension [Unknown]
  - Malaise [Unknown]
  - Blood pressure systolic decreased [Recovering/Resolving]
  - Hyperhidrosis [Unknown]
  - Breast tenderness [Unknown]
  - Asthenia [Unknown]
  - Dehydration [Unknown]
  - Heart rate increased [Not Recovered/Not Resolved]
  - Pruritus [Unknown]
  - Dyspepsia [Not Recovered/Not Resolved]
  - Blood pressure increased [Not Recovered/Not Resolved]
  - Hypertension [Not Recovered/Not Resolved]
  - Blood pressure fluctuation [Unknown]
  - Gastrooesophageal reflux disease [Not Recovered/Not Resolved]
  - Stress [Unknown]
  - Heart rate abnormal [Unknown]
  - Flushing [Unknown]
